FAERS Safety Report 17214878 (Version 1)
Quarter: 2019Q4

REPORT INFORMATION
  Report Type: Spontaneous
  Country: US (occurrence: US)
  Receive Date: 20191230
  Receipt Date: 20191230
  Transmission Date: 20200122
  Serious: Yes (Other)
  Sender: FDA-Public Use
  Company Number: US-SA-2019SA356246

PATIENT
  Age: 71 Year
  Sex: Female

DRUGS (3)
  1. VICTOZA [Concomitant]
     Active Substance: LIRAGLUTIDE
     Dosage: UNK
     Route: 065
  2. LANTUS SOLOSTAR [Suspect]
     Active Substance: INSULIN GLARGINE
     Indication: TYPE 2 DIABETES MELLITUS
     Dosage: 28 IU
     Route: 065
  3. LANTUS SOLOSTAR [Suspect]
     Active Substance: INSULIN GLARGINE
     Dosage: 17-18 IU EVERY EVENING
     Route: 065

REACTIONS (7)
  - Product dispensing error [Unknown]
  - Cerebrovascular accident [Unknown]
  - Injection site pain [Unknown]
  - Product storage error [Unknown]
  - Wrong technique in device usage process [Unknown]
  - Balance disorder [Unknown]
  - Injection site erythema [Recovered/Resolved]
